FAERS Safety Report 5192732-5 (Version None)
Quarter: 2006Q4

REPORT INFORMATION
  Report Type: 
  Country: None (occurrence: None)
  Receive Date: 20061228
  Receipt Date: 20061116
  Transmission Date: 20070319
  Serious: Yes (Hospitalization, Other)
  Sender: FDA-Public Use
  Company Number: PHFR2006GB03410

PATIENT
  Age: 53 Year
  Sex: Female

DRUGS (7)
  1. CLOZARIL [Suspect]
     Dosage: 200 MG SINGLE DOSE
     Route: 048
  2. RISPERIDONE [Concomitant]
  3. SIMVASTATIN [Concomitant]
     Dosage: 20 MG, BID
     Route: 048
  4. RANITIDINE [Concomitant]
     Dosage: 150 MG, BID
     Route: 048
  5. METFORMIN HCL [Concomitant]
     Dosage: 500 MG, BID
     Route: 048
  6. THIAMINE [Concomitant]
     Dosage: 100 MG, TID
     Route: 048
  7. VITAMIN CAP [Concomitant]
     Dosage: MANE
     Route: 048

REACTIONS (5)
  - ACCIDENTAL EXPOSURE [None]
  - DYSARTHRIA [None]
  - IRRITABILITY [None]
  - MEDICATION ERROR [None]
  - SOMNOLENCE [None]
